FAERS Safety Report 13237046 (Version 5)
Quarter: 2017Q1

REPORT INFORMATION
  Report Type: Spontaneous
  Country: JP (occurrence: JP)
  Receive Date: 20170215
  Receipt Date: 20170331
  Transmission Date: 20170428
  Serious: Yes (Other)
  Sender: FDA-Public Use
  Company Number: JP-BRISTOL-MYERS SQUIBB COMPANY-BMS-2017-012110

PATIENT
  Sex: Female

DRUGS (2)
  1. OPDIVO [Suspect]
     Active Substance: NIVOLUMAB
     Indication: NON-SMALL CELL LUNG CANCER RECURRENT
     Dosage: UNK
     Route: 041
     Dates: start: 2016, end: 2016
  2. OPDIVO [Suspect]
     Active Substance: NIVOLUMAB
     Indication: PRODUCT USED FOR UNKNOWN INDICATION
     Dosage: UNK
     Route: 065
     Dates: start: 201612

REACTIONS (11)
  - Erythema [Unknown]
  - Alopecia [Unknown]
  - Pulmonary oedema [Unknown]
  - Nausea [Unknown]
  - Haematuria [Unknown]
  - Therapeutic aspiration [Unknown]
  - Effusion [Unknown]
  - Pleural effusion [Unknown]
  - Pericardial effusion [Unknown]
  - Cystitis [Unknown]
  - Generalised oedema [Unknown]

NARRATIVE: CASE EVENT DATE: 201606
